FAERS Safety Report 7912034-0 (Version None)
Quarter: 2011Q4

REPORT INFORMATION
  Report Type: 
  Country: None (occurrence: None)
  Receive Date: 20111114
  Receipt Date: 20111102
  Transmission Date: 20120403
  Serious: Yes (Hospitalization, Other)
  Sender: FDA-Public Use
  Company Number: JP-SANOFI-AVENTIS-2011SA057009

PATIENT
  Age: 67 Year
  Sex: Female
  Weight: 52.6 kg

DRUGS (6)
  1. ASPIRIN [Concomitant]
     Dates: start: 20110512, end: 20110830
  2. MICARDIS [Concomitant]
     Indication: HYPERTENSION
     Dates: start: 20110512, end: 20110830
  3. PLAVIX [Suspect]
     Dosage: THERAPY START DATE 30 MAY 2011
     Route: 065
     Dates: start: 20110512, end: 20110830
  4. CRESTOR [Suspect]
     Indication: HYPERLIPIDAEMIA
     Route: 048
     Dates: start: 20110512, end: 20110830
  5. DILTIAZEM HCL [Concomitant]
     Indication: HYPERTENSION
     Dates: start: 20110512, end: 20110830
  6. NIKORANMART [Concomitant]
     Indication: HYPERTENSION
     Dates: start: 20110512, end: 20110830

REACTIONS (1)
  - INTERSTITIAL LUNG DISEASE [None]
